FAERS Safety Report 7110490-1 (Version None)
Quarter: 2010Q4

REPORT INFORMATION
  Report Type: 
  Country: None (occurrence: None)
  Receive Date: 20101112
  Receipt Date: 20101027
  Transmission Date: 20110411
  Serious: Yes (Hospitalization)
  Sender: FDA-Public Use
  Company Number: 1-17293876

PATIENT
  Age: 66 Year
  Sex: Male
  Weight: 95.2554 kg

DRUGS (12)
  1. QUININE SULFATE [Suspect]
     Indication: MUSCLE SPASMS
     Dosage: 1 CAPSULE AT BEDTIME PRN, ORAL
     Route: 048
     Dates: start: 20071206, end: 20080829
  2. QUININE SULFATE [Suspect]
     Indication: MUSCLE SPASMS
     Dosage: 1 CAPSULE AT BEDTIME PRN, ORAL
     Route: 048
     Dates: start: 20060602, end: 20070601
  3. TOPROL-XL [Concomitant]
  4. TRAMADOL [Concomitant]
  5. METHOTREXATE [Concomitant]
  6. HUMIRA [Concomitant]
  7. AUGMENTIN '125' [Concomitant]
  8. SIMVASTATIN [Concomitant]
  9. METOPROLOL [Concomitant]
  10. NEXIUM [Concomitant]
  11. NEURONTIN [Concomitant]
  12. ALBUTEROL [Concomitant]

REACTIONS (9)
  - ANAEMIA [None]
  - BACK DISORDER [None]
  - BLOOD DISORDER [None]
  - CARBON MONOXIDE POISONING [None]
  - COAGULOPATHY [None]
  - DRUG HYPERSENSITIVITY [None]
  - GASTROINTESTINAL DISORDER [None]
  - THROMBOCYTOPENIA [None]
  - UNEVALUABLE EVENT [None]
